FAERS Safety Report 22233600 (Version 3)
Quarter: 2023Q2

REPORT INFORMATION
  Report Type: Spontaneous
  Country: JP (occurrence: JP)
  Receive Date: 20230420
  Receipt Date: 20230524
  Transmission Date: 20230722
  Serious: Yes (Death, Hospitalization, Other)
  Sender: FDA-Public Use
  Company Number: JP-KYOWAKIRIN-2023AKK005453

PATIENT
  Age: 42 Year
  Sex: Female

DRUGS (14)
  1. PEGFILGRASTIM [Suspect]
     Active Substance: PEGFILGRASTIM
     Indication: Colony stimulating factor therapy
     Dosage: 3.6 MILLIGRAM, THE FIRST ADMINISTRATION OF G-LASTA
     Route: 058
     Dates: start: 20230403, end: 20230403
  2. PEGFILGRASTIM [Suspect]
     Active Substance: PEGFILGRASTIM
     Dosage: 3.6 MILLIGRAM, AN ADDITIONAL ADMINISTRATION OF G-LASTA
     Route: 058
     Dates: start: 20230406, end: 20230406
  3. KEYTRUDA [Suspect]
     Active Substance: PEMBROLIZUMAB
     Indication: Breast cancer
     Dosage: 200 MG, FOUR COURSES OF KEYTRUDA PLUS PACLITAXEL (PTX) PLUS CARBOPLATIN (CBDCA) THERAPY WERE PERFORM
     Route: 041
     Dates: start: 20230331
  4. KEYTRUDA [Suspect]
     Active Substance: PEMBROLIZUMAB
     Dosage: UNK
     Route: 041
     Dates: start: 20230106
  5. DOXORUBICIN HYDROCHLORIDE [Suspect]
     Active Substance: DOXORUBICIN HYDROCHLORIDE
     Indication: Breast cancer
     Dosage: 98 MILLIGRAM, UNK
     Route: 041
     Dates: start: 20230331
  6. CYCLOPHOSPHAMIDE [Suspect]
     Active Substance: CYCLOPHOSPHAMIDE
     Indication: Breast cancer
     Dosage: 980 MILLIGRAM, UNK
     Route: 041
     Dates: start: 20230331
  7. CARBOPLATIN [Concomitant]
     Active Substance: CARBOPLATIN
     Indication: Breast cancer
     Dosage: UNK
     Route: 065
     Dates: start: 20230106
  8. PACLITAXEL [Concomitant]
     Active Substance: PACLITAXEL
     Indication: Breast cancer
     Dosage: UNK
     Route: 065
     Dates: start: 20230106
  9. Arokaris [Concomitant]
     Indication: Nausea
     Dosage: 235 MILLIGRAM, UNK
     Route: 041
     Dates: start: 20230331
  10. Arokaris [Concomitant]
     Indication: Vomiting
     Dosage: UNK
  11. PALONOSETRON [Concomitant]
     Active Substance: PALONOSETRON
     Indication: Nausea
     Dosage: 0.75 MILLIGRAM
     Route: 041
     Dates: start: 20230331
  12. PALONOSETRON [Concomitant]
     Active Substance: PALONOSETRON
     Indication: Vomiting
     Dosage: UNK, UNK
  13. DEXAMETHASONE SODIUM PHOSPHATE [Concomitant]
     Active Substance: DEXAMETHASONE SODIUM PHOSPHATE
     Indication: Nausea
     Dosage: 9.9 MILLIGRAM, UNK
     Route: 041
     Dates: start: 20230331
  14. DEXAMETHASONE SODIUM PHOSPHATE [Concomitant]
     Active Substance: DEXAMETHASONE SODIUM PHOSPHATE
     Indication: Vomiting
     Dosage: UNK, UNK

REACTIONS (3)
  - Sepsis [Fatal]
  - Febrile neutropenia [Fatal]
  - Drug ineffective [Unknown]

NARRATIVE: CASE EVENT DATE: 20230406
